FAERS Safety Report 21369151 (Version 1)
Quarter: 2022Q3

REPORT INFORMATION
  Report Type: Spontaneous
  Country: JP (occurrence: None)
  Receive Date: 20220923
  Receipt Date: 20220923
  Transmission Date: 20221026
  Serious: Yes (Hospitalization)
  Sender: FDA-Public Use
  Company Number: JP-MDD US Operations-MDD202209-003002

PATIENT
  Age: 80 Year
  Sex: Female

DRUGS (2)
  1. APOKYN [Suspect]
     Active Substance: APOMORPHINE HYDROCHLORIDE
     Indication: Product used for unknown indication
     Dosage: 30
     Route: 058
  2. APOKYN [Suspect]
     Active Substance: APOMORPHINE HYDROCHLORIDE
     Dosage: THE SIXTH DOSE OF APOKYN WAS SEEMED TO BE INJECTED BY FORCE
     Route: 058

REACTIONS (2)
  - Pyrexia [Recovered/Resolved]
  - Intentional product misuse [Unknown]
